FAERS Safety Report 5026893-5 (Version None)
Quarter: 2006Q2

REPORT INFORMATION
  Report Type: 
  Country: None (occurrence: None)
  Receive Date: 20060608
  Receipt Date: 20060601
  Transmission Date: 20061013
  Serious: No
  Sender: FDA-Public Use
  Company Number: 2006-02213

PATIENT
  Age: 41 Year
  Sex: Male

DRUGS (1)
  1. TESTOSTERONE ENANTHATE [Suspect]
     Indication: BLOOD TESTOSTERONE DECREASED
     Dosage: 250 MG, 12 DAYS AFTER 2ND INJ X 1, INTRAMUSCULAR; SEE IMAGE
     Route: 030

REACTIONS (2)
  - MEDICATION ERROR [None]
  - PRIAPISM [None]
